FAERS Safety Report 7204424-9 (Version None)
Quarter: 2010Q4

REPORT INFORMATION
  Report Type: 
  Country: None (occurrence: None)
  Receive Date: 20101230
  Receipt Date: 20101224
  Transmission Date: 20110411
  Serious: Yes (Life-Threatening)
  Sender: FDA-Public Use
  Company Number: CN-BRISTOL-MYERS SQUIBB COMPANY-15461841

PATIENT
  Age: 47 Year
  Sex: Male
  Weight: 75 kg

DRUGS (4)
  1. CETUXIMAB [Suspect]
     Indication: COLORECTAL CANCER METASTATIC
     Dosage: MOST RECENT DOSE ON 23DEC2010.NO OF INFUSIONS=16.STRENGTH=5MG/ML, DRUG INTERRUPTD ON 24DEC10
     Route: 042
     Dates: start: 20100521, end: 20101223
  2. IRINOTECAN [Suspect]
     Indication: COLORECTAL CANCER METASTATIC
     Dosage: MOST RECENT DOSE ON 05DEC2010.NO OF INFUSIONS=15.DRUG INTERRUPTD ON 24DEC10
     Route: 042
     Dates: start: 20100521, end: 20101205
  3. FLUOROURACIL [Suspect]
     Indication: COLORECTAL CANCER METASTATIC
     Dosage: MOST RECENT DOSE ON 05DEC2010,NO OF INFUSIONS=15, DRUG INTERRUPTD ON 24DEC10
     Route: 042
     Dates: start: 20100521, end: 20101205
  4. FOLINIC ACID [Suspect]
     Indication: COLORECTAL CANCER METASTATIC
     Dosage: MOST RECENT DOSE ON 05DEC2010,NO OF INFUSIONS=15, DRUG INTERRUPTD ON 24DEC10
     Route: 042
     Dates: start: 20100521, end: 20101205

REACTIONS (1)
  - HYPOKALAEMIA [None]
